FAERS Safety Report 24301358 (Version 1)
Quarter: 2024Q3

REPORT INFORMATION
  Report Type: Spontaneous
  Country: US (occurrence: US)
  Receive Date: 20240910
  Receipt Date: 20240910
  Transmission Date: 20241016
  Serious: No
  Sender: ALVOGEN
  Company Number: US-ALVOGEN-2023092692

PATIENT

DRUGS (1)
  1. OXYCODONE AND ACETAMINOPHEN [Suspect]
     Active Substance: ACETAMINOPHEN\OXYCODONE HYDROCHLORIDE
     Indication: Neuralgia
     Dosage: 7.5/ 325 MG

REACTIONS (7)
  - Vertigo [Unknown]
  - Dysstasia [Unknown]
  - Impaired quality of life [Unknown]
  - Balance disorder [Unknown]
  - Nausea [Recovered/Resolved]
  - Drug ineffective [Unknown]
  - Product quality issue [Unknown]
